FAERS Safety Report 14175210 (Version 1)
Quarter: 2017Q4

REPORT INFORMATION
  Report Type: Spontaneous
  Country: JP (occurrence: JP)
  Receive Date: 20171109
  Receipt Date: 20171109
  Transmission Date: 20180321
  Serious: Yes (Death)
  Sender: FDA-Public Use
  Company Number: JP-BAYER-2017-215274

PATIENT
  Age: 61 Year
  Sex: Female
  Weight: 53.9 kg

DRUGS (10)
  1. WARFARIN [Suspect]
     Active Substance: WARFARIN
     Indication: AORTIC VALVE REPLACEMENT
     Dosage: DAILY DOSE 8 MG
     Route: 048
     Dates: start: 20151110, end: 20160926
  2. LOXONIN [Concomitant]
     Active Substance: LOXOPROFEN SODIUM
     Route: 048
  3. BAYASPIRIN 100 MG [Suspect]
     Active Substance: ASPIRIN
     Indication: AORTIC VALVE REPLACEMENT
     Dosage: DAILY DOSE 100 MG
     Route: 048
     Dates: end: 20170727
  4. MUCOSTA [Concomitant]
     Active Substance: REBAMIPIDE
     Route: 048
  5. WARFARIN [Suspect]
     Active Substance: WARFARIN
     Indication: AORTIC VALVE REPLACEMENT
     Dosage: DAILY DOSE 8.5 MG
     Route: 048
     Dates: end: 20151109
  6. WARFARIN [Suspect]
     Active Substance: WARFARIN
     Indication: AORTIC VALVE REPLACEMENT
     Dosage: DAILY DOSE 8.25 MG
     Route: 048
     Dates: start: 20160927, end: 20170612
  7. WARFARIN [Suspect]
     Active Substance: WARFARIN
     Indication: AORTIC VALVE REPLACEMENT
     Dosage: DAILY DOSE 8 MG
     Route: 048
     Dates: start: 20170613, end: 20170727
  8. BISOPROLOL FUMARATE. [Concomitant]
     Active Substance: BISOPROLOL FUMARATE
     Route: 048
  9. LUPRAC [Concomitant]
     Active Substance: TORSEMIDE
     Route: 048
  10. KAYTWO [Concomitant]
     Active Substance: MENATETRENONE
     Dosage: UNK
     Dates: start: 20170728

REACTIONS (1)
  - Cerebellar haemorrhage [Fatal]

NARRATIVE: CASE EVENT DATE: 20170727
